FAERS Safety Report 9805295 (Version 2)
Quarter: 2014Q2

REPORT INFORMATION
  Report Type: Spontaneous
  Country: MY (occurrence: None)
  Receive Date: 20140106
  Receipt Date: 20140603
  Transmission Date: 20141212
  Serious: Yes (Other)
  Sender: FDA-Public Use
  Company Number: 2013-MY-005028

PATIENT
  Age: 7 Year
  Sex: Female

DRUGS (1)
  1. ERWINASE [Suspect]
     Indication: CHEMOTHERAPY
     Dosage: 019 KU
     Route: 030

REACTIONS (1)
  - Urticaria [None]
